FAERS Safety Report 9185867 (Version 4)
Quarter: 2015Q4

REPORT INFORMATION
  Report Type: Report from Study
  Country: US (occurrence: US)
  Receive Date: 20130325
  Receipt Date: 20151015
  Transmission Date: 20160305
  Serious: Yes (Other)
  Sender: FDA-Public Use
  Company Number: US-AMGEN-USASP2013017725

PATIENT
  Age: 78 Year
  Sex: Female

DRUGS (8)
  1. ARIMIDEX [Concomitant]
     Active Substance: ANASTROZOLE
  2. VITAMIN B12 [Concomitant]
     Active Substance: CYANOCOBALAMIN
  3. AMARYL [Concomitant]
     Active Substance: GLIMEPIRIDE
  4. PROTONIX [Concomitant]
     Active Substance: PANTOPRAZOLE SODIUM
  5. PLAVIX [Concomitant]
     Active Substance: CLOPIDOGREL BISULFATE
  6. PROLIA [Suspect]
     Active Substance: DENOSUMAB
     Indication: OSTEOPOROSIS
     Dosage: UNK
     Route: 065
     Dates: start: 20120914
  7. VITAMIN D                          /00107901/ [Concomitant]
     Active Substance: ERGOCALCIFEROL
  8. AVAPRO [Concomitant]
     Active Substance: IRBESARTAN

REACTIONS (7)
  - Ligament sprain [Unknown]
  - Gait disturbance [Unknown]
  - Kidney infection [Unknown]
  - Rib fracture [Unknown]
  - Urinary tract infection bacterial [Unknown]
  - Groin pain [Not Recovered/Not Resolved]
  - Musculoskeletal chest pain [Not Recovered/Not Resolved]

NARRATIVE: CASE EVENT DATE: 20130215
